FAERS Safety Report 5948688-8 (Version None)
Quarter: 2008Q4

REPORT INFORMATION
  Report Type: 
  Country: None (occurrence: None)
  Receive Date: 20081111
  Receipt Date: 20081029
  Transmission Date: 20090506
  Serious: Yes (Life-Threatening)
  Sender: FDA-Public Use
  Company Number: JP-TYCO HEALTHCARE/MALLINCKRODT-T200801701

PATIENT

DRUGS (6)
  1. OPTIRAY 300 [Suspect]
     Indication: COMPUTERISED TOMOGRAM
     Dosage: 100 ML, SINGLE
     Route: 042
     Dates: start: 20081017, end: 20081017
  2. AMOXICILLIN [Concomitant]
     Dosage: UNK, TID
     Route: 048
     Dates: start: 20081008, end: 20081015
  3. CLARITHROMYCIN [Concomitant]
     Dosage: UNK, BID
     Route: 048
     Dates: start: 20081008, end: 20081015
  4. LANSOPRAZOLE [Concomitant]
     Dosage: 30 MG, BID
     Route: 048
     Dates: start: 20081008, end: 20081015
  5. RABEPRAZOLE SODIUM [Concomitant]
     Dosage: UNK, QD
     Route: 048
     Dates: start: 20081016
  6. SODIUM FERROUS CITRATE [Concomitant]
     Dosage: UNK, QD
     Route: 048
     Dates: start: 20081016

REACTIONS (2)
  - COUGH [None]
  - SHOCK [None]
